FAERS Safety Report 8834311 (Version 1)
Quarter: 2012Q4

REPORT INFORMATION
  Report Type: 
  Country: US (occurrence: US)
  Receive Date: 20121010
  Receipt Date: 20121010
  Transmission Date: 20130627
  Serious: Yes (Death, Other)
  Sender: FDA-Public Use
  Company Number: US-009507513-1009USA03227

PATIENT
  Age: 24 Year
  Sex: Female

DRUGS (4)
  1. ISENTRESS [Suspect]
     Indication: HIV TEST POSITIVE
     Dosage: 800 mg, qd
     Route: 048
  2. ISENTRESS [Suspect]
     Indication: HIV INFECTION
  3. INTELENCE [Suspect]
     Indication: HIV INFECTION
     Dosage: 400 mg, qd
     Route: 048
  4. EPZICOM [Suspect]
     Indication: HIV INFECTION
     Dosage: UNK UNK, qd
     Route: 048

REACTIONS (6)
  - Respiratory failure [Fatal]
  - Exposure during pregnancy [Recovered/Resolved]
  - Haemorrhage [Fatal]
  - Disseminated intravascular coagulation [Fatal]
  - Injection site pain [Unknown]
  - Intestinal ischaemia [Unknown]
